FAERS Safety Report 6170220-7 (Version None)
Quarter: 2009Q2

REPORT INFORMATION
  Report Type: 
  Country: None (occurrence: None)
  Receive Date: 20090428
  Receipt Date: 20090421
  Transmission Date: 20091009
  Serious: Yes (Death, Hospitalization)
  Sender: FDA-Public Use
  Company Number: DE-CELGENEUS-062-C5013-09011116

PATIENT
  Sex: Male
  Weight: 60 kg

DRUGS (16)
  1. CC-5013 [Suspect]
     Route: 048
     Dates: start: 20090106, end: 20090112
  2. KLACID [Concomitant]
     Indication: PNEUMONIA
     Route: 051
     Dates: start: 20081208, end: 20081212
  3. METOPROLOL TARTRATE [Concomitant]
     Route: 051
     Dates: start: 20081212, end: 20081212
  4. ZYLORIC [Concomitant]
     Route: 048
     Dates: start: 20081210, end: 20081222
  5. BISOPROLOL FUMARATE [Concomitant]
     Route: 048
     Dates: start: 20081212, end: 20081222
  6. CLEXANE [Concomitant]
     Indication: THROMBOSIS PROPHYLAXIS
     Route: 051
     Dates: start: 20081209, end: 20081222
  7. BUSCOPAN [Concomitant]
     Route: 048
     Dates: start: 20081209, end: 20081209
  8. IBUPROFEN [Concomitant]
     Route: 048
     Dates: start: 20081209, end: 20081209
  9. LAXOBERAL [Concomitant]
     Route: 048
     Dates: start: 20081210, end: 20081210
  10. PARACETAMOL [Concomitant]
     Indication: SEPSIS
     Route: 048
     Dates: start: 20081208, end: 20081210
  11. SODIUM CHLORIDE [Concomitant]
     Indication: PARENTERAL NUTRITION
     Route: 051
     Dates: start: 20081208, end: 20081215
  12. DOBENDAN [Concomitant]
     Indication: DRY SKIN
     Route: 048
     Dates: start: 20081217, end: 20081217
  13. BEPHANTHEN [Concomitant]
     Indication: DRY SKIN
     Route: 061
     Dates: start: 20081216, end: 20081222
  14. ERTHROCYTE CONCENTRATE [Concomitant]
     Route: 051
     Dates: start: 20081210, end: 20081213
  15. DEXTROSE 5% [Concomitant]
     Indication: PARENTERAL NUTRITION
     Route: 051
     Dates: start: 20081208, end: 20081209
  16. KALINOR [Concomitant]
     Route: 048
     Dates: start: 20081216, end: 20081222

REACTIONS (4)
  - HERNIA OBSTRUCTIVE [None]
  - ILEUS [None]
  - PNEUMONIA [None]
  - SEPSIS [None]
